FAERS Safety Report 19690440 (Version 1)
Quarter: 2021Q3

REPORT INFORMATION
  Report Type: Spontaneous
  Country: US (occurrence: US)
  Receive Date: 20210811
  Receipt Date: 20210811
  Transmission Date: 20211014
  Serious: Yes (Death)
  Sender: FDA-Public Use
  Company Number: None

PATIENT
  Age: 17 Year
  Sex: Female

DRUGS (2)
  1. AFINITOR [Suspect]
     Active Substance: EVEROLIMUS
     Route: 048
     Dates: start: 20210618, end: 20210709
  2. NEULASTA [Suspect]
     Active Substance: PEGFILGRASTIM
     Indication: ILLNESS
     Route: 058
     Dates: start: 20210205, end: 20210709

REACTIONS (1)
  - Disease progression [None]

NARRATIVE: CASE EVENT DATE: 20210709
